FAERS Safety Report 9536348 (Version 1)
Quarter: 2013Q2

REPORT INFORMATION
  Report Type: Spontaneous
  Country: US (occurrence: None)
  Receive Date: 20130517
  Receipt Date: 20130517
  Transmission Date: 20140414
  Serious: No
  Sender: FDA-Public Use
  Company Number: 1000041884

PATIENT
  Age: 51 Year
  Sex: Male

DRUGS (4)
  1. VIIBRYD (VILAZODONE HYDROCHLORIDE) (10 MILLIGRAM, TABLETS) [Suspect]
     Indication: DEPRESSION
     Route: 048
     Dates: start: 201212
  2. XANAX [Concomitant]
  3. SEROQUEL (QUETIAPINE FUMARATE) [Concomitant]
  4. SIMVASTATIN (SIMVASTATIN) (SIMVASATATIN) [Concomitant]

REACTIONS (5)
  - Muscle twitching [None]
  - Tremor [None]
  - Heart rate increased [None]
  - Anxiety [None]
  - Cold sweat [None]
